FAERS Safety Report 4984760-7 (Version None)
Quarter: 2006Q2

REPORT INFORMATION
  Report Type: 
  Country: None (occurrence: None)
  Receive Date: 20060427
  Receipt Date: 20051219
  Transmission Date: 20061013
  Serious: Yes (Other)
  Sender: FDA-Public Use
  Company Number: CA-BRISTOL-MYERS SQUIBB COMPANY-13223359

PATIENT
  Age: 59 Year
  Sex: Female

DRUGS (10)
  1. MURAGLITAZAR [Suspect]
     Indication: DIABETES MELLITUS NON-INSULIN-DEPENDENT
     Route: 048
     Dates: start: 20050423
  2. METFORMIN HYDROCHLORIDE [Suspect]
     Indication: DIABETES MELLITUS NON-INSULIN-DEPENDENT
     Route: 048
     Dates: start: 19980915
  3. ALTACE [Concomitant]
     Dates: start: 20040601
  4. ATENOLOL [Concomitant]
     Dates: start: 20030108
  5. PARIET [Concomitant]
     Dates: start: 20031001
  6. SIMVASTATIN [Concomitant]
     Dates: start: 20030831
  7. ASPIRIN [Concomitant]
     Dates: start: 20030131
  8. TIAZAC [Concomitant]
     Dates: start: 20040928
  9. NITROGLYCERIN [Concomitant]
     Dates: start: 20040923
  10. DYAZIDE [Concomitant]
     Dates: start: 20040710

REACTIONS (3)
  - ARTERIOSCLEROSIS CORONARY ARTERY [None]
  - CORONARY ARTERY DISEASE [None]
  - LUNG SQUAMOUS CELL CARCINOMA STAGE UNSPECIFIED [None]
